FAERS Safety Report 8172476-8 (Version None)
Quarter: 2012Q1

REPORT INFORMATION
  Report Type: 
  Country: None (occurrence: None)
  Receive Date: 20120227
  Receipt Date: 20120227
  Transmission Date: 20120608
  Serious: Yes (Hospitalization)
  Sender: FDA-Public Use
  Company Number: None

PATIENT
  Age: 86 Year
  Sex: Female
  Weight: 50 kg

DRUGS (3)
  1. LISINOPRIL [Concomitant]
  2. AVEENO BABY CALMING COMFORT BABY LOTION [Suspect]
     Indication: DRY SKIN PROPHYLAXIS
     Dosage: 3X DAILY, TOPICAL
     Route: 061
     Dates: start: 20120107
  3. METOPROLOL TARTRATE [Concomitant]

REACTIONS (5)
  - RASH [None]
  - HYPERSENSITIVITY [None]
  - PRURITUS [None]
  - ERYTHEMA [None]
  - CELLULITIS [None]
